FAERS Safety Report 16751289 (Version 1)
Quarter: 2019Q3

REPORT INFORMATION
  Report Type: Report from Study
  Country: None (occurrence: AT)
  Receive Date: 20190828
  Receipt Date: 20190828
  Transmission Date: 20191005
  Serious: Yes (Death, Other)
  Sender: FDA-Public Use
  Company Number: AT-ABBVIE-19K-009-2893103-00

PATIENT
  Age: 80 Year
  Sex: Female

DRUGS (1)
  1. DUODOPA [Suspect]
     Active Substance: CARBIDOPA\LEVODOPA
     Indication: PARKINSON^S DISEASE
     Dosage: MD: 5ML, CRT 2.6M/H, CRH 1.6ML/H, ED1.8ML?20 MG/ML 5 MG/ML
     Route: 050
     Dates: start: 20150209

REACTIONS (5)
  - Unresponsive to stimuli [Not Recovered/Not Resolved]
  - General physical health deterioration [Not Recovered/Not Resolved]
  - Weight decreased [Not Recovered/Not Resolved]
  - Death [Fatal]
  - Parenteral nutrition [Not Recovered/Not Resolved]

NARRATIVE: CASE EVENT DATE: 20190824
